FAERS Safety Report 7442901-6 (Version None)
Quarter: 2011Q2

REPORT INFORMATION
  Report Type: 
  Country: None (occurrence: None)
  Receive Date: 20110425
  Receipt Date: 20110425
  Transmission Date: 20111010
  Serious: Yes (Hospitalization)
  Sender: FDA-Public Use
  Company Number: None

PATIENT
  Age: 85 Year
  Sex: Male
  Weight: 99 kg

DRUGS (2)
  1. FENTANYL [Suspect]
     Indication: CARDIAC OPERATION
     Dosage: 75 MCG ONCE IV
     Route: 042
     Dates: start: 20110421, end: 20110421
  2. MIDAZOLAM HCL [Suspect]
     Indication: CARDIAC OPERATION
     Dosage: 0.5 MG ONCE IV
     Route: 042
     Dates: start: 20110421, end: 20110421

REACTIONS (7)
  - HYPOTENSION [None]
  - NAUSEA [None]
  - PRURITUS [None]
  - ABDOMINAL PAIN [None]
  - OEDEMA PERIPHERAL [None]
  - TACHYCARDIA [None]
  - URTICARIA [None]
